FAERS Safety Report 11390467 (Version 1)
Quarter: 2015Q3

REPORT INFORMATION
  Report Type: Spontaneous
  Country: US (occurrence: US)
  Receive Date: 20150818
  Receipt Date: 20150818
  Transmission Date: 20151125
  Serious: No
  Sender: FDA-Public Use
  Company Number: US-ROCHE-1399037

PATIENT
  Age: 50 Year
  Sex: Male

DRUGS (1)
  1. PEGASYS [Suspect]
     Active Substance: PEGINTERFERON ALFA-2A
     Indication: HEPATITIS C
     Dosage: EVERY TUESDAY
     Route: 065

REACTIONS (5)
  - Bedridden [Unknown]
  - Foaming at mouth [Unknown]
  - Nausea [Unknown]
  - Feeding disorder [Unknown]
  - Pain [Unknown]

NARRATIVE: CASE EVENT DATE: 20140508
